FAERS Safety Report 12897192 (Version 1)
Quarter: 2016Q4

REPORT INFORMATION
  Report Type: Spontaneous
  Country: US (occurrence: US)
  Receive Date: 20161031
  Receipt Date: 20161031
  Transmission Date: 20170207
  Serious: No
  Sender: FDA-Public Use
  Company Number: US-ENDO PHARMACEUTICALS INC.-2015-005060

PATIENT
  Age: 51 Year
  Sex: Male
  Weight: 95.34 kg

DRUGS (2)
  1. ALPRAZOLAM. [Concomitant]
     Active Substance: ALPRAZOLAM
     Indication: PRODUCT USED FOR UNKNOWN INDICATION
  2. MORPHINE SULFATE ER 60MG [Suspect]
     Active Substance: MORPHINE SULFATE
     Indication: PAIN
     Dosage: 2 TABLETS BY MOUTH EVERY MORNING, 1 TABLET EVERY EVENING AFTER DINNER.
     Route: 048
     Dates: start: 2015

REACTIONS (5)
  - Pruritus [Not Recovered/Not Resolved]
  - Drug screen negative [Not Recovered/Not Resolved]
  - Visual impairment [Not Recovered/Not Resolved]
  - Drug ineffective [Not Recovered/Not Resolved]
  - Product quality issue [Not Recovered/Not Resolved]

NARRATIVE: CASE EVENT DATE: 2015
